FAERS Safety Report 14343332 (Version 2)
Quarter: 2018Q1

REPORT INFORMATION
  Report Type: Spontaneous
  Country: CO (occurrence: CO)
  Receive Date: 20180102
  Receipt Date: 20180319
  Transmission Date: 20180509
  Serious: Yes (Other)
  Sender: FDA-Public Use
  Company Number: CO-BAYER-2017-249471

PATIENT
  Age: 34 Year
  Sex: Female

DRUGS (4)
  1. MIRENA [Suspect]
     Active Substance: LEVONORGESTREL
     Indication: CONTRACEPTION
     Dosage: 20 MCG/24HR, CONT
     Route: 015
     Dates: start: 20171101
  2. JADELLE [Suspect]
     Active Substance: LEVONORGESTREL
     Dosage: UNK
     Route: 058
     Dates: start: 2006, end: 2007
  3. VITAMIN C [Concomitant]
     Active Substance: ASCORBIC ACID
  4. MIRENA [Suspect]
     Active Substance: LEVONORGESTREL
     Indication: CONTRACEPTION
     Dosage: UNK
     Dates: start: 20171111

REACTIONS (11)
  - Skin discolouration [Unknown]
  - Apathy [Not Recovered/Not Resolved]
  - Acne [Unknown]
  - Headache [Unknown]
  - Suicidal ideation [Unknown]
  - Abdominal pain lower [Unknown]
  - Pain of skin [Unknown]
  - Pharyngitis [Unknown]
  - Skin discolouration [Unknown]
  - Depression [Recovered/Resolved]
  - Depressed mood [Recovered/Resolved]

NARRATIVE: CASE EVENT DATE: 201711
